FAERS Safety Report 9938150 (Version 3)
Quarter: 2016Q2

REPORT INFORMATION
  Report Type: Report from Study
  Country: US (occurrence: US)
  Receive Date: 20140303
  Receipt Date: 20160602
  Transmission Date: 20160815
  Serious: Yes (Death, Life-Threatening, Hospitalization, Other)
  Sender: FDA-Public Use
  Company Number: US-SHIRE-ALL1-2014-01070

PATIENT
  Age: 13 Year
  Sex: Male
  Weight: 50 kg

DRUGS (3)
  1. IDURSULFASE [Suspect]
     Active Substance: IDURSULFASE
     Indication: MUCOPOLYSACCHARIDOSIS II
     Dosage: 0.5 MG/KG, 1X/WEEK
     Route: 041
     Dates: start: 20060919
  2. FLUTICASONE [Concomitant]
     Active Substance: FLUTICASONE\FLUTICASONE PROPIONATE
     Indication: RESPIRATORY DISORDER
     Dosage: 4 DF (4 PUFFS), 1X/DAY:QD
     Route: 055
     Dates: start: 20130603
  3. PREDNISOLONE. [Concomitant]
     Active Substance: PREDNISOLONE
     Indication: PREMEDICATION
     Dosage: 6.75 ML, 1X/WEEK
     Route: 048
     Dates: start: 201101

REACTIONS (7)
  - Respiratory failure [Fatal]
  - Oxygen saturation decreased [Fatal]
  - Cough [Fatal]
  - Respiratory distress [Fatal]
  - Agitation [Fatal]
  - Pneumonia [Fatal]
  - Vomiting [Fatal]

NARRATIVE: CASE EVENT DATE: 20140209
